FAERS Safety Report 7958585-4 (Version None)
Quarter: 2011Q4

REPORT INFORMATION
  Report Type: 
  Country: None (occurrence: None)
  Receive Date: 20111206
  Receipt Date: 20111129
  Transmission Date: 20120403
  Serious: No
  Sender: FDA-Public Use
  Company Number: US-BIOGENIDEC-2011BI045415

PATIENT
  Age: 33 Year
  Sex: Female

DRUGS (1)
  1. TYSABRI [Suspect]
     Indication: MULTIPLE SCLEROSIS
     Route: 042
     Dates: start: 20110825, end: 20110825

REACTIONS (6)
  - SPEECH DISORDER [None]
  - URINARY INCONTINENCE [None]
  - PAIN [None]
  - RASH [None]
  - MULTIPLE SCLEROSIS RELAPSE [None]
  - TINNITUS [None]
